FAERS Safety Report 20603706 (Version 1)
Quarter: 2022Q1

REPORT INFORMATION
  Report Type: Spontaneous
  Country: US (occurrence: US)
  Receive Date: 20220316
  Receipt Date: 20220316
  Transmission Date: 20220423
  Serious: No
  Sender: FDA-Public Use
  Company Number: US-009507513-2203USA001162

PATIENT
  Age: 65 Year
  Sex: Male

DRUGS (1)
  1. STROMECTOL [Suspect]
     Active Substance: IVERMECTIN
     Indication: Diarrhoea
     Route: 048

REACTIONS (2)
  - Self-medication [Unknown]
  - Product use issue [Unknown]
